FAERS Safety Report 22246690 (Version 1)
Quarter: 2023Q2

REPORT INFORMATION
  Report Type: Spontaneous
  Country: US (occurrence: None)
  Receive Date: 20230421
  Receipt Date: 20230421
  Transmission Date: 20230721
  Serious: Yes (Other)
  Sender: FDA-Public Use
  Company Number: None

PATIENT
  Sex: Male

DRUGS (15)
  1. HUMIRA [Suspect]
     Active Substance: ADALIMUMAB
     Indication: Polyarthritis
     Dosage: OTHER QUANTITY : 40MG/0.4ML;?FREQUENCY : EVERY OTHER WEEK;?
     Route: 058
     Dates: start: 20200924
  2. BETH-PHOS/AC INJ [Concomitant]
  3. BROMOCRIPTIN TAB [Concomitant]
  4. CLOTRIMAZOLE CRE [Concomitant]
  5. DICLOFENAC [Concomitant]
     Active Substance: DICLOFENAC
  6. GABAPENTIN [Concomitant]
     Active Substance: GABAPENTIN
  7. HYDROCO/APAP TAB [Concomitant]
  8. IBUPROFEN TAB [Concomitant]
  9. MELOXICAM TAB [Concomitant]
  10. NORTRIPTYLIN CAP [Concomitant]
  11. ORPHENADRINE TAB ER [Concomitant]
  12. PREDNISONE [Concomitant]
     Active Substance: PREDNISONE
  13. SERTRALINE HYDROCHLORIDE [Concomitant]
     Active Substance: SERTRALINE HYDROCHLORIDE
  14. TAMSULOSIN [Concomitant]
     Active Substance: TAMSULOSIN
  15. TRIAMCINOLON OIN [Concomitant]

REACTIONS (2)
  - Infection [None]
  - Intentional dose omission [None]
